FAERS Safety Report 5229076-9 (Version None)
Quarter: 2007Q1

REPORT INFORMATION
  Report Type: 
  Country: None (occurrence: None)
  Receive Date: 20061201
  Receipt Date: 20061004
  Transmission Date: 20070707
  Serious: No
  Sender: FDA-Public Use
  Company Number: US200608003042

PATIENT
  Age: 46 Year
  Sex: Male

DRUGS (4)
  1. CYMBALTA [Suspect]
     Indication: BACK PAIN
     Dosage: SEE IMAGE
     Dates: start: 20060101, end: 20060814
  2. CYMBALTA [Suspect]
     Indication: BACK PAIN
     Dosage: SEE IMAGE
     Dates: start: 20060401
  3. CLONAZEPAM [Concomitant]
  4. VITAMINS [Concomitant]

REACTIONS (4)
  - CONSTIPATION [None]
  - DISTURBANCE IN ATTENTION [None]
  - HYPOACUSIS [None]
  - VERTIGO [None]
